FAERS Safety Report 18079801 (Version 2)
Quarter: 2020Q3

REPORT INFORMATION
  Report Type: Spontaneous
  Country: US (occurrence: US)
  Receive Date: 20200728
  Receipt Date: 20200812
  Transmission Date: 20201103
  Serious: No
  Sender: FDA-Public Use
  Company Number: US-BEH-2020120431

PATIENT
  Age: 63 Year
  Sex: Female

DRUGS (2)
  1. HAEGARDA [Suspect]
     Active Substance: HUMAN C1-ESTERASE INHIBITOR
     Indication: HEREDITARY ANGIOEDEMA
     Dosage: 4000 INTERNATIONAL UNIT,  FREQUENCY Q 3?4 DAYS
     Route: 058
  2. HAEGARDA [Suspect]
     Active Substance: HUMAN C1-ESTERASE INHIBITOR
     Indication: PROPHYLAXIS

REACTIONS (6)
  - Hypersensitivity [Recovered/Resolved]
  - Administration site pruritus [Unknown]
  - Administration site erythema [Unknown]
  - Administration site pain [Unknown]
  - Administration site warmth [Unknown]
  - Administration site induration [Unknown]

NARRATIVE: CASE EVENT DATE: 20200722
